FAERS Safety Report 9437764 (Version 2)
Quarter: 2014Q3

REPORT INFORMATION
  Report Type: Spontaneous
  Country: US (occurrence: US)
  Receive Date: 20130802
  Receipt Date: 20140911
  Transmission Date: 20150326
  Serious: Yes (Other)
  Sender: FDA-Public Use
  Company Number: US-BAYER-2013-093472

PATIENT
  Age: 34 Year
  Sex: Female
  Weight: 83.9 kg

DRUGS (1)
  1. MIRENA [Suspect]
     Active Substance: LEVONORGESTREL
     Dosage: 20 MCG/24HR, CONT
     Route: 015
     Dates: start: 20090425, end: 200912

REACTIONS (7)
  - Drug ineffective [None]
  - Depression [None]
  - Abortion spontaneous [None]
  - Device dislocation [None]
  - Injury [None]
  - Pregnancy with contraceptive device [None]
  - Pain [None]

NARRATIVE: CASE EVENT DATE: 2009
